FAERS Safety Report 9657098 (Version 4)
Quarter: 2014Q1

REPORT INFORMATION
  Report Type: Spontaneous
  Country: JP (occurrence: JP)
  Receive Date: 20131030
  Receipt Date: 20140312
  Transmission Date: 20141002
  Serious: Yes (Death, Hospitalization, Other)
  Sender: FDA-Public Use
  Company Number: US-ASTRAZENECA-2013SE79401

PATIENT
  Sex: Female

DRUGS (9)
  1. BLOPRESS [Suspect]
     Indication: HYPERTENSION
     Route: 048
  2. BONALON [Concomitant]
     Route: 048
     Dates: end: 20130720
  3. DIOVAN [Concomitant]
     Indication: HYPERTENSION
     Dosage: UNK
     Route: 048
     Dates: end: 20130720
  4. PREDONINE [Concomitant]
     Route: 048
  5. ISCOTIN [Concomitant]
     Route: 048
     Dates: end: 20130720
  6. IMURAN [Concomitant]
     Route: 048
  7. BAKTAR [Concomitant]
     Route: 048
  8. MAGMITT [Concomitant]
     Route: 048
     Dates: end: 20130720
  9. CODEINE PHOSPHATE [Concomitant]
     Route: 048
     Dates: end: 20130720

REACTIONS (1)
  - Hepatic failure [Fatal]
